FAERS Safety Report 5608032-2 (Version None)
Quarter: 2008Q1

REPORT INFORMATION
  Report Type: 
  Country: None (occurrence: None)
  Receive Date: 20080128
  Receipt Date: 20080128
  Transmission Date: 20080703
  Serious: Yes (Death)
  Sender: FDA-Public Use
  Company Number: None

PATIENT
  Age: 57 Year
  Sex: Male
  Weight: 99.7913 kg

DRUGS (1)
  1. ADVIL [Suspect]
     Indication: ARTHRALGIA
     Dosage: 4 TABLETS DAILY
     Dates: start: 20070101, end: 20071221

REACTIONS (1)
  - MYOCARDIAL INFARCTION [None]
